FAERS Safety Report 9696432 (Version 1)
Quarter: 2013Q4

REPORT INFORMATION
  Report Type: Spontaneous
  Country: BE (occurrence: None)
  Receive Date: 20131115
  Receipt Date: 20131115
  Transmission Date: 20140711
  Serious: Yes (Other)
  Sender: FDA-Public Use
  Company Number: 2013000305

PATIENT
  Age: 81 Year
  Sex: Male

DRUGS (11)
  1. ACEON [Suspect]
     Indication: HYPERTENSION
     Route: 048
     Dates: end: 2013
  2. ASAFLOW [Concomitant]
  3. ONBREZ [Concomitant]
  4. XANTHIUM [Concomitant]
  5. FLIXOTIDE [Concomitant]
  6. ZOLPIDEM [Concomitant]
  7. MONTELUKAST (MONTELUKAST) [Concomitant]
  8. PANTOPRAZOLE (PANTOPRAZOLE) [Concomitant]
  9. D-CURE [Concomitant]
  10. SPIRIVA [Concomitant]
  11. CREON [Concomitant]

REACTIONS (5)
  - Pruritus generalised [None]
  - Angioedema [None]
  - Dyspnoea [None]
  - Lip swelling [None]
  - Swollen tongue [None]
